FAERS Safety Report 6589036-2 (Version None)
Quarter: 2010Q1

REPORT INFORMATION
  Report Type: 
  Country: None (occurrence: None)
  Receive Date: 20100218
  Receipt Date: 20100208
  Transmission Date: 20100710
  Serious: Yes (Life-Threatening, Hospitalization, Other)
  Sender: FDA-Public Use
  Company Number: US-MERCK-0804USA00056

PATIENT
  Age: 16 Year
  Sex: Male
  Weight: 69 kg

DRUGS (5)
  1. SINGULAIR [Suspect]
     Indication: RHINITIS ALLERGIC
     Route: 048
     Dates: start: 20070307, end: 20080320
  2. SINGULAIR [Suspect]
     Indication: BRONCHIAL HYPERREACTIVITY
     Route: 048
     Dates: start: 20070307, end: 20080320
  3. NASACORT [Concomitant]
     Route: 055
     Dates: start: 20041104, end: 20080320
  4. SINGULAIR [Suspect]
     Route: 048
     Dates: start: 20040510, end: 20070307
  5. SINGULAIR [Suspect]
     Route: 048
     Dates: start: 20040510, end: 20070307

REACTIONS (2)
  - SUICIDAL IDEATION [None]
  - SUICIDE ATTEMPT [None]
